FAERS Safety Report 4771525-4 (Version None)
Quarter: 2005Q3

REPORT INFORMATION
  Report Type: 
  Country: None (occurrence: None)
  Receive Date: 20050914
  Receipt Date: 20050914
  Transmission Date: 20060218
  Serious: Yes (Hospitalization)
  Sender: FDA-Public Use
  Company Number: None

PATIENT
  Sex: Male

DRUGS (2)
  1. ADRIAMYCIN 10 MG/M2 [Suspect]
     Indication: PROSTATE CANCER
     Dosage: 10 MG/M2 IV 3X A WEEK
     Route: 042
     Dates: start: 20050711, end: 20050822
  2. TAXOTERE [Suspect]
     Indication: PROSTATE CANCER
     Dosage: 35 MG/M2 IV 3X A WEEK
     Route: 042

REACTIONS (1)
  - CHEST PAIN [None]
